FAERS Safety Report 6856533-1 (Version None)
Quarter: 2010Q3

REPORT INFORMATION
  Report Type: 
  Country: None (occurrence: None)
  Receive Date: 20100719
  Receipt Date: 20100708
  Transmission Date: 20110219
  Serious: Yes (Hospitalization)
  Sender: FDA-Public Use
  Company Number: DK-JNJFOC-20100702785

PATIENT
  Sex: Female

DRUGS (3)
  1. REMICADE [Suspect]
     Indication: ARTHRITIS
     Dosage: DOSE 3MG/KG;FREQUENCY: ^WEEK 0, 2, 6, 8^
     Route: 042
  2. REMICADE [Suspect]
     Dosage: DOSE 3MG/KG;FREQUENCY: ^WEEK 0, 2, 6, 8^
     Route: 042
  3. METHOTREXATE [Suspect]
     Indication: ARTHRITIS
     Route: 048

REACTIONS (1)
  - BONE MARROW DISORDER [None]
